FAERS Safety Report 5195342-9 (Version None)
Quarter: 2006Q4

REPORT INFORMATION
  Report Type: 
  Country: None (occurrence: None)
  Receive Date: 20061229
  Receipt Date: 20061218
  Transmission Date: 20070319
  Serious: Yes (Other)
  Sender: FDA-Public Use
  Company Number: US-PFIZER INC-2006154935

PATIENT
  Sex: Male
  Weight: 74.8 kg

DRUGS (4)
  1. VIAGRA [Suspect]
     Indication: ERECTILE DYSFUNCTION
  2. CIALIS [Suspect]
     Indication: ERECTILE DYSFUNCTION
  3. LEVITRA [Suspect]
     Indication: ERECTILE DYSFUNCTION
  4. NEXIUM [Concomitant]
     Indication: GASTRIC DISORDER

REACTIONS (6)
  - AGGRESSION [None]
  - DEPRESSION [None]
  - IMPAIRED DRIVING ABILITY [None]
  - LOSS OF CONSCIOUSNESS [None]
  - SLEEP APNOEA SYNDROME [None]
  - SUICIDAL BEHAVIOUR [None]
